FAERS Safety Report 14205926 (Version 1)
Quarter: 2017Q4

REPORT INFORMATION
  Report Type: Spontaneous
  Country: US (occurrence: US)
  Receive Date: 20171120
  Receipt Date: 20171120
  Transmission Date: 20180321
  Serious: No
  Sender: FDA-Public Use
  Company Number: US-009507513-1711USA005393

PATIENT
  Age: 62 Year
  Sex: Female

DRUGS (3)
  1. AMBIEN [Concomitant]
     Active Substance: ZOLPIDEM TARTRATE
  2. XANAX [Concomitant]
     Active Substance: ALPRAZOLAM
  3. BELSOMRA [Suspect]
     Active Substance: SUVOREXANT
     Indication: INSOMNIA
     Dosage: UNK, QPM
     Route: 048
     Dates: start: 201710, end: 2017

REACTIONS (1)
  - Drug ineffective [Unknown]

NARRATIVE: CASE EVENT DATE: 2017
